FAERS Safety Report 25907497 (Version 1)
Quarter: 2025Q4

REPORT INFORMATION
  Report Type: Spontaneous
  Country: US (occurrence: US)
  Receive Date: 20251010
  Receipt Date: 20251010
  Transmission Date: 20260117
  Serious: Yes (Other)
  Sender: RANBAXY
  Company Number: US-SUN PHARMACEUTICAL INDUSTRIES INC-2025R1-529577

PATIENT
  Sex: Female
  Weight: 49.887 kg

DRUGS (3)
  1. METOPROLOL [Suspect]
     Active Substance: METOPROLOL
     Indication: Blood pressure abnormal
     Dosage: 12.5 MILLIGRAM
     Route: 065
  2. LOSARTAN [Suspect]
     Active Substance: LOSARTAN
     Indication: Blood pressure abnormal
     Dosage: 12.5 MILLIGRAM
     Route: 065
  3. DUPILUMAB [Suspect]
     Active Substance: DUPILUMAB
     Indication: Dermatitis atopic
     Dosage: 300 MILLIGRAM,QOW
     Route: 058

REACTIONS (5)
  - Glaucoma [Unknown]
  - Drug ineffective [Unknown]
  - Dry mouth [Unknown]
  - Throat irritation [Unknown]
  - Cough [Unknown]
